FAERS Safety Report 25210722 (Version 1)
Quarter: 2025Q2

REPORT INFORMATION
  Report Type: Spontaneous
  Country: ZA (occurrence: ZA)
  Receive Date: 20250417
  Receipt Date: 20250417
  Transmission Date: 20250717
  Serious: Yes (Disabling, Other)
  Sender: SANOFI AVENTIS
  Company Number: ZA-SA-2025SA109037

PATIENT
  Age: 40 Year
  Sex: Female
  Weight: 142 kg

DRUGS (1)
  1. AUBAGIO [Suspect]
     Active Substance: TERIFLUNOMIDE

REACTIONS (7)
  - Loss of personal independence in daily activities [Unknown]
  - Optic neuritis [Unknown]
  - Balance disorder [Unknown]
  - Central nervous system lesion [Unknown]
  - Diarrhoea [Unknown]
  - Nausea [Unknown]
  - Fatigue [Unknown]

NARRATIVE: CASE EVENT DATE: 20250411
